FAERS Safety Report 11166952 (Version 1)
Quarter: 2015Q2

REPORT INFORMATION
  Report Type: Spontaneous
  Country: GB (occurrence: None)
  Receive Date: 20150603
  Receipt Date: 20150603
  Transmission Date: 20150821
  Serious: Yes (Hospitalization)
  Sender: FDA-Public Use
  Company Number: 2015SCAL000251

PATIENT
  Age: 27 Year
  Sex: Female

DRUGS (12)
  1. LAMOTRIGINE (LAMOTRIGINE) TABLET [Suspect]
     Active Substance: LAMOTRIGINE
     Indication: EPILEPSY
  2. PREMPAK [Suspect]
     Active Substance: ESTROGENS, CONJUGATED\NORGESTREL
     Indication: PRODUCT USED FOR UNKNOWN INDICATION
     Dosage: IN THE MORNING
  3. SENNA /00142201/ (SENNA ALEXANDRINA) [Concomitant]
  4. MELATONIN (MELATONIN) [Suspect]
     Active Substance: MELATONIN
     Indication: PRODUCT USED FOR UNKNOWN INDICATION
     Dosage: AT NIGHT
  5. CLONAZEPAM (CLONAZEPAM) [Suspect]
     Active Substance: CLONAZEPAM
     Indication: PRODUCT USED FOR UNKNOWN INDICATION
     Dosage: AT NIGHT
  6. CODEINE W/PARACETAMOL [Suspect]
     Active Substance: ACETAMINOPHEN\CODEINE PHOSPHATE
     Indication: PRODUCT USED FOR UNKNOWN INDICATION
  7. GABAPENTIN (GABAPENTIN) CAPSULE [Concomitant]
  8. LACTULOSE (LACTULOSE) [Concomitant]
     Active Substance: LACTULOSE
  9. DESMOPRESSIN (DESMOPRESSIN) [Suspect]
     Active Substance: DESMOPRESSIN
     Indication: PRODUCT USED FOR UNKNOWN INDICATION
  10. BACLOFEN (BACLOFEN) [Suspect]
     Active Substance: BACLOFEN
     Indication: PRODUCT USED FOR UNKNOWN INDICATION
  11. LEVOTHYROXINE (LEVOTHYROXINE) [Suspect]
     Active Substance: LEVOTHYROXINE
     Indication: PRODUCT USED FOR UNKNOWN INDICATION
     Dosage: IN THE MORNING
  12. HYDROCORTISONE (HYDROCORTISONE) [Suspect]
     Active Substance: HYDROCORTISONE
     Indication: PRODUCT USED FOR UNKNOWN INDICATION
     Dosage: MORNING AND LUNCHTIME

REACTIONS (3)
  - Hyponatraemia [None]
  - Seizure [None]
  - Drug interaction [None]
